FAERS Safety Report 4510924-2 (Version None)
Quarter: 2004Q4

REPORT INFORMATION
  Report Type: 
  Country: None (occurrence: None)
  Receive Date: 20041025
  Receipt Date: 20040130
  Transmission Date: 20050328
  Serious: Yes (Other)
  Sender: FDA-Public Use
  Company Number: NSADSS2002045584

PATIENT
  Age: 65 Year
  Sex: Female
  Weight: 74.8435 kg

DRUGS (7)
  1. REMICADE [Suspect]
     Indication: COLITIS ULCERATIVE
     Dosage: 1 IN 1 AS NECESSARY, INTRAVENOUS DRIP
     Route: 041
     Dates: start: 20021210, end: 20021210
  2. LIPITOR [Concomitant]
  3. ZESTRIL [Concomitant]
  4. MAXIDE (DYAZIDE) [Concomitant]
  5. TRENTAL [Concomitant]
  6. ACCUPRIL [Concomitant]
  7. MVI (MULTIVITAMINS) [Concomitant]

REACTIONS (2)
  - SERUM SICKNESS [None]
  - SYSTEMIC LUPUS ERYTHEMATOSUS [None]
